FAERS Safety Report 7300956-3 (Version None)
Quarter: 2010Q4

REPORT INFORMATION
  Report Type: 
  Country: None (occurrence: None)
  Receive Date: 20101230
  Receipt Date: 20091207
  Transmission Date: 20110411
  Serious: Yes (Other)
  Sender: FDA-Public Use
  Company Number: 20090590

PATIENT
  Sex: Male

DRUGS (1)
  1. VENOFER [Suspect]
     Indication: RENAL FAILURE CHRONIC
     Dosage: 300 MG INTRAVENOUS
     Route: 042
     Dates: start: 20091123, end: 20091123

REACTIONS (1)
  - HYPOTENSION [None]
